FAERS Safety Report 9611100 (Version 2)
Quarter: 2013Q4

REPORT INFORMATION
  Report Type: Report from Study
  Country: US (occurrence: US)
  Receive Date: 20131009
  Receipt Date: 20131018
  Transmission Date: 20140711
  Serious: Yes (Hospitalization)
  Sender: FDA-Public Use
  Company Number: US-ROCHE-1284921

PATIENT
  Age: 53 Year
  Sex: Male
  Weight: 109.46 kg

DRUGS (14)
  1. BEVACIZUMAB [Suspect]
     Indication: NEUROENDOCRINE TUMOUR
     Route: 042
     Dates: start: 20130906
  2. CAPECITABINE [Suspect]
     Indication: NEUROENDOCRINE TUMOUR
     Route: 048
     Dates: start: 20130907, end: 20130917
  3. LANTUS [Concomitant]
     Route: 058
  4. ZOFRAN [Concomitant]
     Route: 065
  5. ATIVAN [Concomitant]
     Route: 065
  6. COMPAZINE [Concomitant]
  7. OXYCODONE [Concomitant]
     Route: 065
  8. IMODIUM [Concomitant]
     Route: 065
  9. GLUCOTROL [Concomitant]
     Route: 065
  10. LEVOTHYROXINE [Concomitant]
     Route: 048
  11. CREON 24 [Concomitant]
     Route: 065
  12. CRESTOR [Concomitant]
     Route: 065
  13. HUMULIN U [Concomitant]
     Route: 058
  14. TEMOZOLOMIDE [Concomitant]
     Route: 065

REACTIONS (2)
  - Gastric ulcer [Unknown]
  - Duodenal ulcer [Unknown]
